FAERS Safety Report 24303477 (Version 1)
Quarter: 2024Q3

REPORT INFORMATION
  Report Type: Report from Study
  Country: MY (occurrence: MY)
  Receive Date: 20240910
  Receipt Date: 20240910
  Transmission Date: 20241017
  Serious: Yes (Hospitalization, Other)
  Sender: BAXTER
  Company Number: MY-BAXTER-2024BAX024050

PATIENT
  Age: 69 Year
  Sex: Female

DRUGS (19)
  1. CYCLOPHOSPHAMIDE [Suspect]
     Active Substance: CYCLOPHOSPHAMIDE
     Indication: Diffuse large B-cell lymphoma
     Dosage: UNK, 21-DAY CYCLE (3 WEEKS), AS A PART OF R-CHOP
     Route: 042
     Dates: start: 20211204, end: 20220214
  2. CYCLOPHOSPHAMIDE [Suspect]
     Active Substance: CYCLOPHOSPHAMIDE
     Dosage: UNK, LAST DOSE PRIOR TO ONSET OF THE EVENTS
     Route: 042
     Dates: start: 20220203, end: 20220203
  3. CYCLOPHOSPHAMIDE [Suspect]
     Active Substance: CYCLOPHOSPHAMIDE
     Dosage: UNK
     Route: 042
     Dates: start: 20220225
  4. DOXORUBICIN [Suspect]
     Active Substance: DOXORUBICIN
     Indication: Diffuse large B-cell lymphoma
     Dosage: UNK, 21-DAY CYCLE (3 WEEKS), AS A PART OF R-CHOP
     Route: 042
     Dates: start: 20211204, end: 20220214
  5. DOXORUBICIN [Suspect]
     Active Substance: DOXORUBICIN
     Dosage: UNK, LAST DOSE PRIOR TO ONSET OF THE EVENTS
     Route: 042
     Dates: start: 20220203, end: 20220203
  6. DOXORUBICIN [Suspect]
     Active Substance: DOXORUBICIN
     Dosage: UNK
     Route: 042
     Dates: start: 20220225
  7. VINCRISTINE [Suspect]
     Active Substance: VINCRISTINE
     Indication: Diffuse large B-cell lymphoma
     Dosage: UNK, 21-DAY CYCLE (3 WEEKS), AS A PART OF R-CHOP
     Route: 042
     Dates: start: 20211204, end: 20220214
  8. VINCRISTINE [Suspect]
     Active Substance: VINCRISTINE
     Dosage: UNK, LAST DOSE PRIOR TO ONSET OF THE EVENTS
     Route: 042
     Dates: start: 20220203, end: 20220203
  9. VINCRISTINE [Suspect]
     Active Substance: VINCRISTINE
     Dosage: UNK
     Route: 042
     Dates: start: 20220225
  10. PREDNISOLONE [Suspect]
     Active Substance: PREDNISOLONE
     Indication: Diffuse large B-cell lymphoma
     Dosage: UNK, 21-DAY CYCLE (3 WEEKS), AS A PART OF R-CHOP
     Route: 042
     Dates: start: 20211204, end: 20220214
  11. PREDNISOLONE [Suspect]
     Active Substance: PREDNISOLONE
     Dosage: UNK, LAST DOSE PRIOR TO ONSET OF THE EVENTS
     Route: 042
     Dates: start: 20220203, end: 20220203
  12. PREDNISOLONE [Suspect]
     Active Substance: PREDNISOLONE
     Dosage: UNK
     Route: 042
     Dates: start: 20220225
  13. RITUXIMAB [Suspect]
     Active Substance: RITUXIMAB
     Indication: Diffuse large B-cell lymphoma
     Dosage: UNK, 21-DAY CYCLE (3 WEEKS), AS A PART OF R-CHOP
     Route: 042
     Dates: start: 20211204, end: 20220214
  14. RITUXIMAB [Suspect]
     Active Substance: RITUXIMAB
     Dosage: UNK, LAST DOSE PRIOR TO ONSET OF THE EVENTS
     Route: 042
     Dates: start: 20220203, end: 20220203
  15. RITUXIMAB [Suspect]
     Active Substance: RITUXIMAB
     Dosage: UNK
     Route: 042
     Dates: start: 20220225
  16. VALPROATE SODIUM [Suspect]
     Active Substance: VALPROATE SODIUM
     Indication: Seizure
     Dosage: 400 MG, ONGOING
     Route: 048
     Dates: start: 20220225
  17. Cardiprin [Concomitant]
     Indication: Prophylaxis
     Dosage: 100 MG, DAILY
     Route: 048
     Dates: start: 20211209, end: 20220216
  18. Maltofer [Concomitant]
     Indication: Anaemia
     Dosage: 100 MG
     Route: 048
     Dates: start: 20220120
  19. SLOW K [Concomitant]
     Active Substance: POTASSIUM CHLORIDE
     Indication: Hypokalaemia
     Dosage: 3.6 G
     Route: 048
     Dates: start: 20220210

REACTIONS (3)
  - Haemorrhage intracranial [Recovered/Resolved]
  - COVID-19 [Recovered/Resolved]
  - Neutropenia [Recovered/Resolved]

NARRATIVE: CASE EVENT DATE: 20220210
